FAERS Safety Report 16920033 (Version 3)
Quarter: 2019Q4

REPORT INFORMATION
  Report Type: Report from Study
  Country: JP (occurrence: JP)
  Receive Date: 20191015
  Receipt Date: 20191226
  Transmission Date: 20200122
  Serious: Yes (Hospitalization)
  Sender: FDA-Public Use
  Company Number: JP-EISAI MEDICAL RESEARCH-EC-2019-063547

PATIENT
  Age: 65 Year
  Sex: Male
  Weight: 68 kg

DRUGS (17)
  1. LENVATINIB [Suspect]
     Active Substance: LENVATINIB
     Route: 048
     Dates: start: 20190809, end: 20190822
  2. LENVATINIB [Suspect]
     Active Substance: LENVATINIB
     Route: 048
     Dates: start: 20190911
  3. POLAPREZINC [Concomitant]
     Active Substance: POLAPREZINC
  4. SODIUM RABEPRAZOLE [Concomitant]
     Active Substance: RABEPRAZOLE SODIUM
  5. LENVATINIB [Suspect]
     Active Substance: LENVATINIB
     Route: 048
     Dates: start: 20181108, end: 20190124
  6. LENVATINIB [Suspect]
     Active Substance: LENVATINIB
     Route: 048
     Dates: start: 20190507, end: 20190603
  7. AMLODIPINE [Concomitant]
     Active Substance: AMLODIPINE BESYLATE
  8. LENVATINIB [Suspect]
     Active Substance: LENVATINIB
     Indication: HEPATOCELLULAR CARCINOMA
     Route: 048
     Dates: start: 20180928, end: 20181107
  9. LENVATINIB [Suspect]
     Active Substance: LENVATINIB
     Route: 048
     Dates: start: 20190730, end: 20190801
  10. LENVATINIB [Suspect]
     Active Substance: LENVATINIB
     Route: 048
     Dates: start: 20190823, end: 20190910
  11. LENVATINIB [Suspect]
     Active Substance: LENVATINIB
     Route: 048
     Dates: start: 20190222, end: 20190307
  12. LENVATINIB [Suspect]
     Active Substance: LENVATINIB
     Route: 048
     Dates: start: 20190402, end: 20190408
  13. NEXIUM [Concomitant]
     Active Substance: ESOMEPRAZOLE MAGNESIUM
  14. LENVATINIB [Suspect]
     Active Substance: LENVATINIB
     Dosage: 4 MG AND 8 MG ON ALTERNATE DAYS
     Route: 048
     Dates: start: 20190409, end: 20190506
  15. LENVATINIB [Suspect]
     Active Substance: LENVATINIB
     Route: 048
     Dates: start: 20190604, end: 20190729
  16. LENVATINIB [Suspect]
     Active Substance: LENVATINIB
     Dosage: 8 MG AND 12 MG ON ALTERNATE DAYS
     Route: 048
     Dates: start: 20190125, end: 20190221
  17. DAIKENCHUTO [Concomitant]
     Active Substance: HERBALS

REACTIONS (1)
  - Gastric ulcer [Recovering/Resolving]

NARRATIVE: CASE EVENT DATE: 20190222
